FAERS Safety Report 21283270 (Version 1)
Quarter: 2022Q3

REPORT INFORMATION
  Report Type: Spontaneous
  Country: CN (occurrence: CN)
  Receive Date: 20220901
  Receipt Date: 20220901
  Transmission Date: 20221027
  Serious: Yes (Hospitalization, Other)
  Sender: FDA-Public Use
  Company Number: None

PATIENT
  Age: 14 Year
  Sex: Male
  Weight: 45 kg

DRUGS (7)
  1. CYCLOPHOSPHAMIDE [Suspect]
     Active Substance: CYCLOPHOSPHAMIDE
     Indication: Acute lymphocytic leukaemia
     Dosage: 1200MG, ONCE DAILY (DILUTED WITH NS 500ML)
     Route: 041
     Dates: start: 20220716, end: 20220716
  2. SODIUM CHLORIDE [Suspect]
     Active Substance: SODIUM CHLORIDE
     Indication: Medication dilution
     Dosage: 500 ML, ONCE DAILY (DILUTED WITH CYCLOPHOSPHAMIDE 1200 MG)
     Route: 041
     Dates: start: 20220716, end: 20220716
  3. SODIUM CHLORIDE [Suspect]
     Active Substance: SODIUM CHLORIDE
     Dosage: 150 ML, ONCE DAILY (DILUTED WITH MESNA 0.72G)
     Route: 041
     Dates: start: 20220716, end: 20220716
  4. SODIUM CHLORIDE [Suspect]
     Active Substance: SODIUM CHLORIDE
     Dosage: 100 ML, ONCE DAILY (DILUTED WITH CYTARABINE HYDROCHLORIDE 120 MG)
     Route: 041
     Dates: start: 20220717, end: 20220727
  5. CYTARABINE HYDROCHLORIDE [Suspect]
     Active Substance: CYTARABINE HYDROCHLORIDE
     Indication: Acute lymphocytic leukaemia
     Dosage: 120 MG, ONCE DAILY (DILUTED WITH NS 100 ML)
     Route: 041
     Dates: start: 20220717, end: 20220727
  6. MESNA [Suspect]
     Active Substance: MESNA
     Indication: Acute lymphocytic leukaemia
     Dosage: 0.72 G, ONCE DAILY (DILUTED WITH NS150 ML)
     Route: 041
     Dates: start: 20220716, end: 20220716
  7. GRANULOCYTE COLONY-STIMULATING FACTOR NOS [Concomitant]
     Active Substance: GRANULOCYTE COLONY-STIMULATING FACTOR NOS
     Indication: Product used for unknown indication
     Dosage: 300 MCG, ONCE DAILY
     Route: 058
     Dates: start: 20220715

REACTIONS (1)
  - Myelosuppression [Recovered/Resolved]

NARRATIVE: CASE EVENT DATE: 20220722
